FAERS Safety Report 11547569 (Version 1)
Quarter: 2015Q3

REPORT INFORMATION
  Report Type: Report from Study
  Country: US (occurrence: US)
  Receive Date: 20150924
  Receipt Date: 20150924
  Transmission Date: 20151125
  Serious: No
  Sender: FDA-Public Use
  Company Number: US-AMGEN-USASL2015096671

PATIENT
  Age: 72 Year
  Sex: Female

DRUGS (1)
  1. ENBREL [Suspect]
     Active Substance: ETANERCEPT
     Indication: RHEUMATOID ARTHRITIS
     Dosage: 50 MG, UNK
     Route: 065
     Dates: start: 2013, end: 20141022

REACTIONS (5)
  - Mobility decreased [Unknown]
  - Pain in extremity [Unknown]
  - Arthralgia [Unknown]
  - Injury associated with device [Unknown]
  - Nervousness [Unknown]

NARRATIVE: CASE EVENT DATE: 201508
